FAERS Safety Report 21915863 (Version 2)
Quarter: 2023Q1

REPORT INFORMATION
  Report Type: Report from Study
  Country: US (occurrence: US)
  Receive Date: 20230126
  Receipt Date: 20230127
  Transmission Date: 20230418
  Serious: Yes (Other)
  Sender: FDA-Public Use
  Company Number: US-LUNDBECK-DKLU3057457

PATIENT
  Age: 58 Year
  Sex: Male

DRUGS (1)
  1. VYEPTI [Suspect]
     Active Substance: EPTINEZUMAB-JJMR
     Indication: Product used for unknown indication
     Route: 041
     Dates: start: 20220803

REACTIONS (1)
  - Cardiac disorder [Not Recovered/Not Resolved]
